FAERS Safety Report 7595811-8 (Version None)
Quarter: 2011Q3

REPORT INFORMATION
  Report Type: 
  Country: None (occurrence: None)
  Receive Date: 20110707
  Receipt Date: 20110630
  Transmission Date: 20111222
  Serious: Yes (Life-Threatening, Hospitalization)
  Sender: FDA-Public Use
  Company Number: DE-JNJFOC-20110606199

PATIENT
  Sex: Male

DRUGS (3)
  1. STELARA [Suspect]
     Dosage: 45-90 MG EVERY 8-12 WEEKS
     Route: 058
     Dates: start: 20100901, end: 20110210
  2. ACITRETIN [Concomitant]
     Indication: PITYRIASIS RUBRA PILARIS
     Route: 048
     Dates: start: 20110201
  3. STELARA [Suspect]
     Indication: PITYRIASIS RUBRA PILARIS
     Route: 058
     Dates: start: 20100311, end: 20100401

REACTIONS (2)
  - OFF LABEL USE [None]
  - ANAPLASTIC LARGE CELL LYMPHOMA T- AND NULL-CELL TYPES [None]
